FAERS Safety Report 24844032 (Version 1)
Quarter: 2025Q1

REPORT INFORMATION
  Report Type: Spontaneous
  Country: RU (occurrence: RU)
  Receive Date: 20250115
  Receipt Date: 20250115
  Transmission Date: 20250408
  Serious: Yes (Hospitalization, Other)
  Sender: RANBAXY
  Company Number: RU-SUN PHARMACEUTICAL INDUSTRIES LTD-2025R1-488813

PATIENT
  Age: 17 Year
  Sex: Male
  Weight: 54 kg

DRUGS (3)
  1. PREGABALIN [Suspect]
     Active Substance: PREGABALIN
     Indication: Product used for unknown indication
     Route: 065
  2. LEVETIRACETAM [Suspect]
     Active Substance: LEVETIRACETAM
     Indication: Product used for unknown indication
     Dosage: 1000 MILLIGRAM, DAILY
     Route: 065
  3. PHENAZEPAM [Suspect]
     Active Substance: PHENAZEPAM
     Indication: Product used for unknown indication
     Route: 065

REACTIONS (4)
  - Toxic encephalopathy [Unknown]
  - Altered state of consciousness [Recovering/Resolving]
  - Poisoning [Unknown]
  - Stupor [Unknown]
